FAERS Safety Report 25102196 (Version 1)
Quarter: 2025Q1

REPORT INFORMATION
  Report Type: Spontaneous
  Country: ES (occurrence: ES)
  Receive Date: 20250320
  Receipt Date: 20250320
  Transmission Date: 20250409
  Serious: Yes (Other)
  Sender: ELI LILLY AND COMPANY
  Company Number: None

PATIENT
  Age: 63 Year
  Sex: Male

DRUGS (5)
  1. HUMALOG MIX75/25 [Interacting]
     Active Substance: INSULIN LISPRO
     Indication: Diabetes mellitus
     Route: 058
     Dates: start: 20140201
  2. SYNJARDY [Interacting]
     Active Substance: EMPAGLIFLOZIN\METFORMIN HYDROCHLORIDE
     Indication: Diabetes mellitus
     Route: 048
     Dates: start: 20160601
  3. SULFAMETHOXAZOLE\TRIMETHOPRIM [Interacting]
     Active Substance: SULFAMETHOXAZOLE\TRIMETHOPRIM
     Indication: Infection
     Dosage: 2 DOSAGE FORM, BID
     Route: 048
     Dates: start: 20241216, end: 20250123
  4. LINEZOLID [Interacting]
     Active Substance: LINEZOLID
     Indication: Infection
     Dosage: 600 MG, BID
     Route: 048
     Dates: start: 20250116, end: 20250228
  5. CEFEPIMA ACCORD [Concomitant]
     Indication: Diabetic foot
     Dosage: 2 G, BID
     Route: 042
     Dates: start: 20241216, end: 20250127

REACTIONS (3)
  - Hyperkalaemia [Recovered/Resolved]
  - Hypoglycaemia [Recovered/Resolved]
  - Drug interaction [Unknown]

NARRATIVE: CASE EVENT DATE: 20250116
